FAERS Safety Report 19586638 (Version 3)
Quarter: 2021Q4

REPORT INFORMATION
  Report Type: Spontaneous
  Country: ES (occurrence: ES)
  Receive Date: 20210720
  Receipt Date: 20211118
  Transmission Date: 20220303
  Serious: Yes (Disabling)
  Sender: FDA-Public Use
  Company Number: NVSC2021ES073540

PATIENT
  Age: 75 Year
  Sex: Male
  Weight: 68.1 kg

DRUGS (6)
  1. MYCOPHENOLATE MOFETIL [Suspect]
     Active Substance: MYCOPHENOLATE MOFETIL
     Indication: Prophylaxis against transplant rejection
     Dosage: 360 UNK
     Route: 065
     Dates: start: 20190624
  2. PREDNISONE [Suspect]
     Active Substance: PREDNISONE
     Indication: Prophylaxis against transplant rejection
     Dosage: 20 MG, QD
     Route: 065
     Dates: start: 20190613
  3. MYFORTIC [Suspect]
     Active Substance: MYCOPHENOLATE SODIUM
     Indication: Prophylaxis against transplant rejection
     Dosage: 720 MG, QD
     Route: 065
     Dates: start: 20190613
  4. ENVARSUS XR [Suspect]
     Active Substance: TACROLIMUS
     Indication: Prophylaxis against transplant rejection
     Dosage: 1 DF, QD
     Route: 048
     Dates: start: 20190624, end: 20210426
  5. ENVARSUS XR [Suspect]
     Active Substance: TACROLIMUS
     Dosage: 4 MG, QD
     Route: 048
     Dates: start: 20190629
  6. ENVARSUS XR [Suspect]
     Active Substance: TACROLIMUS
     Dosage: 1 MG, QD
     Route: 048
     Dates: start: 20200313

REACTIONS (2)
  - Diarrhoea [Recovered/Resolved]
  - Urinary tract infection [Recovering/Resolving]

NARRATIVE: CASE EVENT DATE: 20191023
